FAERS Safety Report 24327038 (Version 1)
Quarter: 2024Q3

REPORT INFORMATION
  Report Type: Spontaneous
  Country: US (occurrence: None)
  Receive Date: 20240916
  Receipt Date: 20240916
  Transmission Date: 20241017
  Serious: Yes (Hospitalization)
  Sender: Public
  Company Number: None

PATIENT
  Sex: Male

DRUGS (3)
  1. EPOPROSTENOL [Suspect]
     Active Substance: EPOPROSTENOL
     Indication: Pulmonary arterial hypertension
     Dosage: OTHER QUANTITY : 57.2NG/KG/MIN;?OTHER FREQUENCY : CONTINUOUS ;?
     Route: 042
     Dates: start: 202210
  2. DEVICE [Concomitant]
     Active Substance: DEVICE
  3. WINREVAIR [Concomitant]
     Active Substance: SOTATERCEPT-CSRK

REACTIONS (3)
  - Device alarm issue [None]
  - Device infusion issue [None]
  - Device malfunction [None]
